FAERS Safety Report 6878403-5 (Version None)
Quarter: 2010Q2

REPORT INFORMATION
  Report Type: 
  Country: None (occurrence: None)
  Receive Date: 20100624
  Receipt Date: 20100412
  Transmission Date: 20101027
  Serious: Yes (Other)
  Sender: FDA-Public Use
  Company Number: 10-000544

PATIENT
  Sex: Female

DRUGS (1)
  1. LOESTRIN (ETHINYL ESTRADIOL, NORETHINDRONE ACETATE) TABLET [Suspect]
     Dosage: 20/1000 UG, QD, ORAL
     Route: 048

REACTIONS (1)
  - THROMBOSIS [None]
